FAERS Safety Report 5440820-8 (Version None)
Quarter: 2007Q3

REPORT INFORMATION
  Report Type: 
  Country: None (occurrence: None)
  Receive Date: 20070831
  Receipt Date: 20070822
  Transmission Date: 20080115
  Serious: Yes (Life-Threatening, Hospitalization, Other)
  Sender: FDA-Public Use
  Company Number: US-MERCK-0708USA04214

PATIENT
  Sex: Male

DRUGS (15)
  1. ZOCOR [Suspect]
     Route: 048
  2. NEORAL [Concomitant]
     Route: 065
  3. CELLCEPT [Concomitant]
     Route: 065
  4. VALCYTE [Concomitant]
     Route: 065
  5. BACTRIM [Concomitant]
     Route: 065
  6. CLOTRIMAZOLE [Concomitant]
     Route: 065
  7. LANTUS [Concomitant]
     Route: 065
  8. AMLODIPINE BESYLATE [Concomitant]
     Route: 065
  9. METOPROLOL [Concomitant]
     Route: 065
  10. MINOXIDIL [Concomitant]
     Route: 065
  11. PROTONIX [Concomitant]
     Route: 065
  12. NEXIUM [Concomitant]
     Route: 065
  13. BUMEX [Concomitant]
     Route: 065
  14. NOVOLOG [Concomitant]
     Route: 065
  15. LUNESTA [Concomitant]
     Route: 065

REACTIONS (2)
  - RENAL DISORDER [None]
  - RHABDOMYOLYSIS [None]
